FAERS Safety Report 16997690 (Version 4)
Quarter: 2019Q4

REPORT INFORMATION
  Report Type: Spontaneous
  Country: ES (occurrence: ES)
  Receive Date: 20191106
  Receipt Date: 20191231
  Transmission Date: 20200122
  Serious: Yes (Other)
  Sender: FDA-Public Use
  Company Number: ES-AUROBINDO-AUR-APL-2019-070521

PATIENT
  Age: 76 Year
  Sex: Female

DRUGS (1)
  1. SEVELAMER [Suspect]
     Active Substance: SEVELAMER
     Indication: CHRONIC KIDNEY DISEASE-MINERAL AND BONE DISORDER
     Dosage: UNK
     Route: 065

REACTIONS (9)
  - Diverticulum [Unknown]
  - Product deposit [Unknown]
  - Crystal deposit intestine [Unknown]
  - Gastrointestinal haemorrhage [Recovered/Resolved]
  - Chronic gastritis [Unknown]
  - Gastric polyps [Unknown]
  - Anaemia [Unknown]
  - Gastrointestinal injury [Recovering/Resolving]
  - Large intestine polyp [Unknown]
